FAERS Safety Report 7345378-4 (Version None)
Quarter: 2011Q1

REPORT INFORMATION
  Report Type: 
  Country: None (occurrence: None)
  Receive Date: 20110310
  Receipt Date: 20110225
  Transmission Date: 20110831
  Serious: Yes (Hospitalization)
  Sender: FDA-Public Use
  Company Number: PHHY2011US16223

PATIENT
  Age: 54 Year
  Sex: Female

DRUGS (7)
  1. GENTALLINE [Concomitant]
  2. PILOCARPINE [Concomitant]
  3. ONDANSETRON [Concomitant]
  4. ZOMETA [Suspect]
     Indication: METASTASES TO BONE
     Dosage: UNK
     Dates: start: 20100412, end: 20100804
  5. MAGACE [Concomitant]
  6. LOREOX [Concomitant]
  7. METHYLDOPA [Concomitant]

REACTIONS (2)
  - FALL [None]
  - LOWER LIMB FRACTURE [None]
